FAERS Safety Report 8688274 (Version 4)
Quarter: 2013Q2

REPORT INFORMATION
  Report Type: Spontaneous
  Country: US (occurrence: US)
  Receive Date: 20120727
  Receipt Date: 20130619
  Transmission Date: 20140414
  Serious: Yes (Hospitalization)
  Sender: FDA-Public Use
  Company Number: US-009507513-2012SP017146

PATIENT
  Age: 27 Year
  Sex: Female
  Weight: 53 kg

DRUGS (3)
  1. NUVARING [Suspect]
     Indication: CONTRACEPTION
     Dosage: UNK
     Dates: start: 20090908, end: 200910
  2. NUVARING [Suspect]
     Dosage: UNK
     Dates: start: 20100320, end: 201004
  3. NUVARING [Suspect]
     Dosage: UNK

REACTIONS (24)
  - Deep vein thrombosis [Unknown]
  - Myalgia [Unknown]
  - Contusion [Unknown]
  - Anxiety disorder [Unknown]
  - Panic disorder [Unknown]
  - Fatigue [Unknown]
  - Fall [Unknown]
  - Diarrhoea [Unknown]
  - Vomiting [Unknown]
  - Ovarian cyst [Unknown]
  - White blood cell count increased [Unknown]
  - Tonsillar hypertrophy [Unknown]
  - Dyspnoea exertional [Unknown]
  - Pharyngeal oedema [Unknown]
  - Lymphadenopathy [Unknown]
  - Pain [Unknown]
  - Raynaud^s phenomenon [Unknown]
  - Vasodilatation [Unknown]
  - Hyperhidrosis [Unknown]
  - Chills [Unknown]
  - Haematuria [Recovered/Resolved]
  - Hypoaesthesia [Unknown]
  - Local swelling [Unknown]
  - Palpitations [Unknown]
